FAERS Safety Report 7908389-3 (Version None)
Quarter: 2011Q4

REPORT INFORMATION
  Report Type: 
  Country: None (occurrence: None)
  Receive Date: 20111111
  Receipt Date: 20111108
  Transmission Date: 20120403
  Serious: Yes (Death, Other)
  Sender: FDA-Public Use
  Company Number: JP-JNJFOC-20100608022

PATIENT
  Sex: Female
  Weight: 55 kg

DRUGS (10)
  1. KETOPROFEN [Suspect]
     Indication: PRODUCT USED FOR UNKNOWN INDICATION
     Route: 003
  2. CELECOXIB [Concomitant]
     Route: 048
  3. ZYRTEC [Concomitant]
     Route: 048
  4. KYTRIL [Concomitant]
     Indication: PROPHYLAXIS
     Route: 042
     Dates: start: 20090515, end: 20090515
  5. LENDORMIN [Concomitant]
     Indication: PROPHYLAXIS
     Route: 048
  6. DOXORUBICIN HCL [Suspect]
     Indication: OVARIAN CANCER RECURRENT
     Dosage: CYCLE 1
     Route: 042
     Dates: start: 20090515, end: 20090515
  7. OXYCONTIN [Concomitant]
     Route: 048
     Dates: end: 20090609
  8. MARZULENE-S [Concomitant]
     Route: 048
  9. SENNOSIDE [Concomitant]
     Indication: PROPHYLAXIS
     Route: 048
  10. ALLEGRA [Concomitant]
     Route: 048

REACTIONS (2)
  - OVARIAN CANCER RECURRENT [None]
  - DELIRIUM [None]
